FAERS Safety Report 5165143-6 (Version None)
Quarter: 2006Q4

REPORT INFORMATION
  Report Type: 
  Country: None (occurrence: None)
  Receive Date: 20061127
  Receipt Date: 20061120
  Transmission Date: 20070319
  Serious: Yes (Hospitalization, Other)
  Sender: FDA-Public Use
  Company Number: HQWYE356214NOV06

PATIENT
  Age: 2 Year
  Sex: Female
  Weight: 10.3 kg

DRUGS (14)
  1. RAPAMUNE [Suspect]
     Indication: PROPHYLAXIS AGAINST TRANSPLANT REJECTION
     Dosage: 0.25 MG 2X PER 1 DAY, ORAL
     Route: 048
     Dates: start: 20020507
  2. MINOXIDIL [Suspect]
     Indication: HYPERTENSION
  3. LASIX [Concomitant]
  4. PRILOSEC [Concomitant]
  5. ZYRTEC [Concomitant]
  6. MIRAPEX [Concomitant]
  7. PROGRAF [Concomitant]
  8. BACTRIM DS [Concomitant]
  9. ATENOLOL [Concomitant]
  10. PREDNISONE TAB [Concomitant]
  11. ATORVASTATIN (ATORVASTATIN) [Concomitant]
  12. LACTOBACILLUS ACIDOPHILUS COMPOUND (LACTOBACILLUS ACIDOPHILUS COMPOUND [Concomitant]
  13. NIFEREX (POLYSACCHARIDE-IRON COMPLEX) [Concomitant]
  14. IBUPROFEN [Concomitant]

REACTIONS (4)
  - DILATATION ATRIAL [None]
  - DISEASE RECURRENCE [None]
  - PERICARDIAL EFFUSION [None]
  - PLEURAL EFFUSION [None]
